FAERS Safety Report 12706922 (Version 1)
Quarter: 2016Q3

REPORT INFORMATION
  Report Type: Spontaneous
  Country: US (occurrence: US)
  Receive Date: 20160901
  Receipt Date: 20160901
  Transmission Date: 20161109
  Serious: No
  Sender: FDA-Public Use
  Company Number: US-AMGEN-USASP2016108521

PATIENT
  Age: 63 Year
  Sex: Female

DRUGS (11)
  1. ROSUVASTATIN. [Concomitant]
     Active Substance: ROSUVASTATIN
  2. LEUCOVORIN. [Concomitant]
     Active Substance: LEUCOVORIN
  3. METHOTREXATE. [Concomitant]
     Active Substance: METHOTREXATE
  4. TRAMADOL. [Concomitant]
     Active Substance: TRAMADOL
  5. FOLIC ACID. [Concomitant]
     Active Substance: FOLIC ACID
  6. LOSARTAN. [Concomitant]
     Active Substance: LOSARTAN
  7. AMLODIPINE [Concomitant]
     Active Substance: AMLODIPINE BESYLATE
     Dosage: UNK
  8. PIROXICAM. [Concomitant]
     Active Substance: PIROXICAM
  9. ENBREL [Suspect]
     Active Substance: ETANERCEPT
     Indication: RHEUMATOID ARTHRITIS
     Dosage: UNK
     Route: 065
     Dates: start: 20160729
  10. OMEPRAZOLE. [Concomitant]
     Active Substance: OMEPRAZOLE
  11. CYMBALTA [Concomitant]
     Active Substance: DULOXETINE HYDROCHLORIDE
     Indication: NEUROPATHY PERIPHERAL
     Dosage: UNK

REACTIONS (3)
  - Tension [Unknown]
  - Feeling abnormal [Unknown]
  - Crying [Unknown]

NARRATIVE: CASE EVENT DATE: 2016
